FAERS Safety Report 9221920 (Version 1)
Quarter: 2013Q2

REPORT INFORMATION
  Report Type: Spontaneous
  Country: US (occurrence: None)
  Receive Date: 20130408
  Receipt Date: 20130408
  Transmission Date: 20140414
  Serious: Yes (Hospitalization)
  Sender: FDA-Public Use
  Company Number: ACO_35179_2013

PATIENT
  Age: 45 Year
  Sex: Female
  Weight: 85.7 kg

DRUGS (8)
  1. AMPYRA (DALFAMPRIDINE) TABLET, 10MG [Suspect]
     Indication: PRODUCT USED FOR UNKNOWN INDICATION
     Route: 048
  2. SYNTHROID (LEVOTHYROXINE SODIUM) TABLET [Concomitant]
  3. PHILLIPS COLON HEALTH (BIFIDOBACTERIUM BIFIDUM, LACTOBACILLUS ACIDOPHILUS) CAPSULE [Concomitant]
  4. PERCOCET (OXYCODONE HYDROCHLORIDE, PARACETAMOL) TABLET [Concomitant]
  5. MORPHINE SULFATE (MORPHINE SULFATE) SUPPOSITORY [Concomitant]
  6. CYMBALTA (DULOXETINE HYDROCHLORIDE) CAPSULE [Concomitant]
  7. BACLOFEN (BACLOFEN) TABLET [Concomitant]
  8. VITAMIN D (ERGOCALCIFEROL) CAPSULE [Concomitant]

REACTIONS (5)
  - Dysphonia [None]
  - Oropharyngeal pain [None]
  - Kidney infection [None]
  - Escherichia urinary tract infection [None]
  - Pruritus [None]
